FAERS Safety Report 8993302 (Version 1)
Quarter: 2013Q1

REPORT INFORMATION
  Report Type: Spontaneous
  Country: US (occurrence: US)
  Receive Date: 20130102
  Receipt Date: 20130102
  Transmission Date: 20140127
  Serious: No
  Sender: FDA-Public Use
  Company Number: US-PFIZER INC-2012332530

PATIENT
  Age: 51 Year
  Sex: Female
  Weight: 99.77 kg

DRUGS (12)
  1. CHANTIX [Suspect]
     Indication: SMOKING CESSATION THERAPY
     Dosage: UNK
     Dates: start: 201210, end: 201210
  2. CHANTIX [Suspect]
     Dosage: 1 MG, 2X/DAY
     Dates: start: 201210
  3. ADVAIR [Concomitant]
     Indication: ASTHMA
     Dosage: 250/50MG, 2X/DAY
  4. SPIRIVA [Concomitant]
     Indication: ASTHMA
     Dosage: UNK, DAILY
  5. DUONEB [Concomitant]
     Indication: ASTHMA
     Dosage: UNK, 4X/DAY
  6. OMEPRAZOLE [Concomitant]
     Indication: GASTRIC ULCER
     Dosage: 40 MG, 2X/DAY
  7. DALIRESP [Concomitant]
     Indication: LUNG DISORDER
     Dosage: 500 MG, DAILY
  8. AMBIEN [Concomitant]
     Indication: SLEEP DISORDER
     Dosage: 10 MG, DAILY
  9. ENDOCET [Concomitant]
     Dosage: 10/650MG, 4X/DAY
  10. XANAX [Concomitant]
     Dosage: 1 MG, 3X/DAY
  11. PROAIR [Concomitant]
     Indication: LUNG DISORDER
     Dosage: UNK
  12. CALCIUM WITH VITAMIN D [Concomitant]
     Dosage: UNK, DAILY

REACTIONS (1)
  - Abnormal dreams [Recovering/Resolving]
